FAERS Safety Report 20987043 (Version 1)
Quarter: 2022Q2

REPORT INFORMATION
  Report Type: Spontaneous
  Country: None (occurrence: A1)
  Receive Date: 20220621
  Receipt Date: 20220621
  Transmission Date: 20220720
  Serious: No
  Sender: FDA-Public Use
  Company Number: A1-Armstrong Pharmaceuticals, Inc.-2130100

PATIENT
  Sex: Female

DRUGS (1)
  1. PRIMATENE MIST [Suspect]
     Active Substance: EPINEPHRINE
     Indication: Product used for unknown indication
     Route: 055

REACTIONS (2)
  - Feeling abnormal [Unknown]
  - Epistaxis [Unknown]
